FAERS Safety Report 7889437-6 (Version None)
Quarter: 2011Q4

REPORT INFORMATION
  Report Type: 
  Country: None (occurrence: None)
  Receive Date: 20111103
  Receipt Date: 20111028
  Transmission Date: 20120403
  Serious: Yes (Death, Hospitalization, Other)
  Sender: FDA-Public Use
  Company Number: AU-PFIZER INC-2011226250

PATIENT
  Age: 79 Year
  Sex: Female

DRUGS (16)
  1. FUROSEMIDE [Concomitant]
     Dosage: 40 MG DAILY
     Dates: start: 20020101
  2. LEVOTHYROXINE SODIUM [Concomitant]
     Dosage: 125 MG, UNK
     Dates: start: 20020101
  3. COLGOUT [Concomitant]
     Dosage: 0.5 MG, UNK
     Dates: start: 20080101
  4. ILOPROST [Concomitant]
     Dosage: 5 UG AT 4-6 INHALATIONS DAILY
     Route: 055
     Dates: start: 20051201
  5. ACETYLSALICYLIC ACID [Concomitant]
     Dosage: 100 MG, UNK
     Dates: start: 20020101
  6. CHLORSIG [Concomitant]
     Dosage: UNK
  7. FUROSEMIDE [Concomitant]
     Dosage: UNK
  8. RAMIPRIL [Concomitant]
     Dosage: 2.5 MG, UNK
     Dates: start: 20030101
  9. REVATIO [Suspect]
     Indication: PULMONARY ARTERIAL HYPERTENSION
     Dosage: 20 MG, 3X/DAY
     Route: 048
     Dates: start: 20090301, end: 20091228
  10. REVATIO [Suspect]
     Dosage: 40 MG, 3X/DAY
     Route: 048
     Dates: start: 20091229, end: 20110920
  11. STRONTIUM RANELATE [Concomitant]
     Dosage: 60 MG, UNK
     Dates: start: 20010101
  12. OMEPRAZOLE [Concomitant]
     Dosage: 20 MG, 2X/DAY
     Dates: start: 20000101
  13. ACETAMINOPHEN [Concomitant]
     Dosage: UNK
     Dates: start: 20020101
  14. AMBRISENTAN [Concomitant]
     Dosage: 10 MG, UNK
     Dates: start: 20070801
  15. ALLOPURINOL [Concomitant]
     Dosage: 100 MG, UNK
     Dates: start: 20080201
  16. VITAMIN D [Concomitant]
     Dosage: UNK
     Dates: start: 20080101

REACTIONS (4)
  - PULMONARY HYPERTENSION [None]
  - INTESTINAL ISCHAEMIA [None]
  - ABDOMINAL STRANGULATED HERNIA [None]
  - ABDOMINAL HERNIA [None]
